FAERS Safety Report 9967254 (Version 2)
Quarter: 2014Q1

REPORT INFORMATION
  Report Type: Report from Study
  Country: US (occurrence: US)
  Receive Date: 20140305
  Receipt Date: 20140305
  Transmission Date: 20141002
  Serious: No
  Sender: FDA-Public Use
  Company Number: US-ABBVIE-13P-163-1106762-00

PATIENT
  Age: 62 Year
  Sex: Female

DRUGS (10)
  1. HUMIRA [Suspect]
     Indication: PSORIASIS
     Dates: start: 20130128, end: 20130527
  2. EFFEXOR XR [Concomitant]
     Indication: DEPRESSION
  3. TOPICAL OINTMENTS [Concomitant]
     Indication: PSORIASIS
  4. TOPICAL SPRAYS [Concomitant]
     Indication: PSORIASIS
  5. ASTHMANEX INHALER [Concomitant]
     Indication: ASTHMA
     Dosage: 2 PUFFS QD
  6. PROAIR [Concomitant]
     Indication: ASTHMA
     Dosage: RESCUE INHALER
  7. ALBUTEROL [Concomitant]
     Indication: ASTHMA
  8. ASPIRIN [Concomitant]
     Indication: PRODUCT USED FOR UNKNOWN INDICATION
  9. CHROMIUM PICOLINATE [Concomitant]
     Indication: VITAMIN SUPPLEMENTATION
  10. VITAMIN B6 [Concomitant]
     Indication: VITAMIN SUPPLEMENTATION

REACTIONS (3)
  - Lung disorder [Recovering/Resolving]
  - Sinusitis [Not Recovered/Not Resolved]
  - Pertussis [Recovering/Resolving]
